FAERS Safety Report 4760876-5 (Version None)
Quarter: 2005Q3

REPORT INFORMATION
  Report Type: 
  Country: None (occurrence: None)
  Receive Date: 20050901
  Receipt Date: 20050823
  Transmission Date: 20060218
  Serious: Yes (Other)
  Sender: FDA-Public Use
  Company Number: HQWYE096724AUG05

PATIENT
  Sex: Female

DRUGS (4)
  1. PREMPRO [Suspect]
  2. CYCRIN [Suspect]
  3. PREMARIN [Suspect]
  4. PROVERA [Suspect]

REACTIONS (2)
  - BREAST CANCER METASTATIC [None]
  - POLYTRAUMATISM [None]
